FAERS Safety Report 20963998 (Version 3)
Quarter: 2025Q3

REPORT INFORMATION
  Report Type: Spontaneous
  Country: EU (occurrence: EU)
  Receive Date: 20220615
  Receipt Date: 20250711
  Transmission Date: 20251020
  Serious: Yes (Other)
  Sender: MYLAN
  Company Number: EU-JNJFOC-20220558783

PATIENT
  Age: 13 Year
  Sex: Female

DRUGS (6)
  1. SILDENAFIL [Suspect]
     Active Substance: SILDENAFIL
     Indication: Pulmonary arterial hypertension
  2. BOSENTAN [Suspect]
     Active Substance: BOSENTAN
     Indication: Pulmonary arterial hypertension
  3. MACITENTAN [Suspect]
     Active Substance: MACITENTAN
     Indication: Pulmonary arterial hypertension
  4. EPOPROSTENOL [Suspect]
     Active Substance: EPOPROSTENOL
     Indication: Pulmonary arterial hypertension
  5. EPOPROSTENOL [Suspect]
     Active Substance: EPOPROSTENOL
  6. OXYGEN [Concomitant]
     Active Substance: OXYGEN

REACTIONS (2)
  - Pulmonary veno-occlusive disease [Unknown]
  - Drug ineffective [Unknown]
